FAERS Safety Report 5702855-7 (Version None)
Quarter: 2008Q2

REPORT INFORMATION
  Report Type: 
  Country: None (occurrence: None)
  Receive Date: 20080410
  Receipt Date: 20080410
  Transmission Date: 20081010
  Serious: Yes (Hospitalization)
  Sender: FDA-Public Use
  Company Number: None

PATIENT
  Sex: Male
  Weight: 71 kg

DRUGS (6)
  1. CYCLOPHOSPHAMIDE [Suspect]
     Dosage: 1440 MG
  2. DOXORUBICIN HYDROCHLORIDE [Suspect]
     Dosage: 76 MG
  3. ETOPOSIDE [Suspect]
     Dosage: 400 MG
  4. PREDNISONE [Suspect]
     Dosage: 1200 MG
  5. RITUXIMAB (MOAB C2B8 ANTI CD20 CHIMERIC) [Suspect]
     Dosage: 700 MG
  6. VINCRISTINE SULFATE [Suspect]
     Dosage: 3.08 MG

REACTIONS (4)
  - ATRIAL FIBRILLATION [None]
  - DILATATION ATRIAL [None]
  - MITRAL VALVE INCOMPETENCE [None]
  - TRICUSPID VALVE INCOMPETENCE [None]
